FAERS Safety Report 6071498-0 (Version None)
Quarter: 2009Q1

REPORT INFORMATION
  Report Type: 
  Country: None (occurrence: None)
  Receive Date: 20090209
  Receipt Date: 20090209
  Transmission Date: 20090719
  Serious: Yes (Other)
  Sender: FDA-Public Use
  Company Number: None

PATIENT
  Age: 74 Year
  Sex: Male

DRUGS (2)
  1. LAMOTRIGINE [Suspect]
     Indication: DEPRESSION
     Dosage: 1 X PER DAY ORAL
     Route: 048
     Dates: start: 20081222, end: 20081229
  2. LAMOTRIGINE [Suspect]
     Indication: PROPHYLAXIS
     Dosage: 1 X PER DAY ORAL
     Route: 048
     Dates: start: 20081222, end: 20081229

REACTIONS (4)
  - JOINT SWELLING [None]
  - OEDEMA PERIPHERAL [None]
  - RASH ERYTHEMATOUS [None]
  - SKIN EXFOLIATION [None]
